FAERS Safety Report 9801786 (Version 2)
Quarter: 2014Q2

REPORT INFORMATION
  Report Type: Spontaneous
  Country: US (occurrence: US)
  Receive Date: 20140107
  Receipt Date: 20140415
  Transmission Date: 20141212
  Serious: Yes (Other)
  Sender: FDA-Public Use
  Company Number: US-GILEAD-2014-0091382

PATIENT
  Sex: Female

DRUGS (3)
  1. LETAIRIS [Suspect]
     Indication: PULMONARY HYPERTENSION
     Dosage: 10 MG, QD
     Route: 065
     Dates: start: 20131223
  2. LETAIRIS [Suspect]
     Indication: EMBOLISM VENOUS
  3. REVATIO [Suspect]

REACTIONS (2)
  - Pneumonia [Unknown]
  - Dyspnoea [Unknown]
